FAERS Safety Report 9223367 (Version 7)
Quarter: 2015Q2

REPORT INFORMATION
  Report Type: Spontaneous
  Country: US (occurrence: US)
  Receive Date: 20130410
  Receipt Date: 20150416
  Transmission Date: 20150821
  Serious: Yes (Hospitalization, Other)
  Sender: FDA-Public Use
  Company Number: US-009507513-1304USA000988

PATIENT
  Sex: Female
  Weight: 102.4 kg

DRUGS (3)
  1. NUVARING [Suspect]
     Active Substance: ETHINYL ESTRADIOL\ETONOGESTREL
     Dosage: 0.12-0.015 MG/24HR, QD FOR 28 DAYS
     Route: 067
     Dates: start: 20080215
  2. NUVARING [Suspect]
     Active Substance: ETHINYL ESTRADIOL\ETONOGESTREL
     Dosage: 0.12-0.015MG/24H, QD X 1 DAY
     Route: 067
     Dates: start: 20080115
  3. NUVARING [Suspect]
     Active Substance: ETHINYL ESTRADIOL\ETONOGESTREL
     Indication: CONTRACEPTION
     Dosage: UNK
     Route: 067
     Dates: start: 20060213, end: 20100128

REACTIONS (14)
  - Incorrect drug administration duration [Unknown]
  - Dysmenorrhoea [Unknown]
  - Pulmonary embolism [Recovered/Resolved]
  - Sinus tachycardia [Unknown]
  - Incorrect drug administration duration [Unknown]
  - Smear cervix abnormal [Unknown]
  - Cholecystectomy [Unknown]
  - Menstrual disorder [Unknown]
  - Staphylococcal infection [Unknown]
  - Papilloma viral infection [Unknown]
  - Maternal exposure before pregnancy [Unknown]
  - Thrombosis [Unknown]
  - Menorrhagia [Unknown]
  - Pulmonary embolism [Recovered/Resolved]

NARRATIVE: CASE EVENT DATE: 20080115
